FAERS Safety Report 8524337-X (Version None)
Quarter: 2012Q2

REPORT INFORMATION
  Report Type: 
  Country: None (occurrence: None)
  Receive Date: 20120406
  Receipt Date: 20110930
  Transmission Date: 20120825
  Serious: Yes (Hospitalization)
  Sender: FDA-Public Use
  Company Number: US-CYPR-2011-000062

PATIENT
  Sex: Male
  Weight: 90 kg

DRUGS (13)
  1. CLOPIDOGREL [Suspect]
     Indication: ANTIPLATELET THERAPY
     Dosage: (75 MG QD ORAL) (7 MG QD ORAL)
     Route: 048
     Dates: start: 20110929
  2. CLOPIDOGREL [Suspect]
     Indication: ANTIPLATELET THERAPY
     Dosage: (75 MG QD ORAL) (7 MG QD ORAL)
     Route: 048
     Dates: start: 20101109, end: 20110927
  3. PRINIVIL [Concomitant]
  4. TERAZOSIN HYDROCHLORIDE [Concomitant]
  5. TESTOSTERONE [Concomitant]
  6. CRESTOR [Concomitant]
  7. ASPIRIN [Suspect]
     Indication: ANTIPLATELET THERAPY
     Dosage: (81 MG QD ORAL), (162 MG QD ORAL), (81 MG QD ORAL)
     Route: 048
     Dates: start: 20110929
  8. ASPIRIN [Suspect]
     Indication: ANTIPLATELET THERAPY
     Dosage: (81 MG QD ORAL), (162 MG QD ORAL), (81 MG QD ORAL)
     Route: 048
     Dates: start: 20110125, end: 20110927
  9. ASPIRIN [Suspect]
     Indication: ANTIPLATELET THERAPY
     Dosage: (81 MG QD ORAL), (162 MG QD ORAL), (81 MG QD ORAL)
     Route: 048
     Dates: start: 20100101, end: 20110125
  10. EFFEXOR [Concomitant]
  11. FISH OIL [Concomitant]
  12. NITROGLYCERIN [Concomitant]
  13. CYPHER STENT [Concomitant]

REACTIONS (1)
  - TRANSIENT ISCHAEMIC ATTACK [None]
